FAERS Safety Report 4626948-0 (Version None)
Quarter: 2005Q1

REPORT INFORMATION
  Report Type: 
  Country: None (occurrence: None)
  Receive Date: 20050331
  Receipt Date: 20050323
  Transmission Date: 20050727
  Serious: Yes (Life-Threatening, Hospitalization, Other)
  Sender: FDA-Public Use
  Company Number: 2005042594

PATIENT
  Age: 1 Day
  Sex: Male
  Weight: 3.1 kg

DRUGS (3)
  1. CYTOTEC [Suspect]
     Indication: INDUCED LABOUR
     Dosage: HALF TABLET (1 IN 2 D), VAGINAL
     Route: 067
     Dates: start: 20050228, end: 20050228
  2. ROPIVACAINE (ROPIVACAINE) [Concomitant]
  3. ALL OTHER THERAPEUTIC PRODUCTS (ALL OTHER THERAPEUTIC PRODUCTS) [Concomitant]

REACTIONS (10)
  - BRAIN DAMAGE [None]
  - BRAIN OEDEMA [None]
  - CONVULSION NEONATAL [None]
  - DRUG EXPOSURE DURING PREGNANCY [None]
  - FACIAL PARESIS [None]
  - FOETAL HEART RATE DECREASED [None]
  - NEONATAL ANOXIA [None]
  - NEONATAL DISORDER [None]
  - RESPIRATORY DISORDER NEONATAL [None]
  - RESUSCITATION [None]
